FAERS Safety Report 5117249-5 (Version None)
Quarter: 2006Q3

REPORT INFORMATION
  Report Type: 
  Country: None (occurrence: None)
  Receive Date: 20060929
  Receipt Date: 20060920
  Transmission Date: 20061208
  Serious: Yes (Life-Threatening)
  Sender: FDA-Public Use
  Company Number: PHNU2006DE03182

PATIENT
  Sex: Female
  Weight: 85.3 kg

DRUGS (1)
  1. ZOMETA [Suspect]
     Indication: METASTASES TO BONE
     Route: 042
     Dates: start: 20041001, end: 20060701

REACTIONS (6)
  - BLOOD MAGNESIUM DECREASED [None]
  - CARDIAC FAILURE [None]
  - MUSCLE SPASMS [None]
  - MUSCULAR WEAKNESS [None]
  - MYALGIA [None]
  - TACHYARRHYTHMIA [None]
